FAERS Safety Report 7769778-3 (Version None)
Quarter: 2011Q3

REPORT INFORMATION
  Report Type: 
  Country: None (occurrence: None)
  Receive Date: 20110922
  Receipt Date: 20100412
  Transmission Date: 20111222
  Serious: No
  Sender: FDA-Public Use
  Company Number: US-ASTRAZENECA-2009UW17109

PATIENT
  Age: 484 Month
  Sex: Female

DRUGS (9)
  1. SEROQUEL [Suspect]
     Route: 048
     Dates: start: 20030123, end: 20080521
  2. ABILIFY [Concomitant]
     Dates: start: 20080521
  3. TRAZODONE HYDROCHLORIDE [Concomitant]
     Dates: start: 20031015
  4. METHOCARBAMOL [Concomitant]
     Dates: start: 20031112
  5. CLONAZEPAM [Concomitant]
     Dates: start: 20031116
  6. ATENOLOL [Concomitant]
     Dates: start: 20040303
  7. CARBIDOPA/LEVO [Concomitant]
     Dosage: 25/100 MG
     Dates: start: 20031015
  8. MEDROXYPROGESTERONE [Concomitant]
     Dates: start: 20031118
  9. LEXAPRO [Concomitant]
     Dates: start: 20040101

REACTIONS (2)
  - INSULIN RESISTANCE [None]
  - DIABETES MELLITUS [None]
